FAERS Safety Report 9833155 (Version 1)
Quarter: 2014Q1

REPORT INFORMATION
  Report Type: Spontaneous
  Country: US (occurrence: US)
  Receive Date: 20140121
  Receipt Date: 20140121
  Transmission Date: 20141002
  Serious: No
  Sender: FDA-Public Use
  Company Number: US-BAUSCH-BL-2012-002327

PATIENT
  Sex: Female

DRUGS (2)
  1. ALAWAY (KETOTIFEN FUMARATE OPHTHALMIC SOLUTION) [Suspect]
     Indication: EYE ALLERGY
     Dosage: ONE DROP IN EACH EYE ONCE
     Route: 047
     Dates: start: 20121218, end: 20121218
  2. MURO 128 [Concomitant]
     Indication: CORNEAL OEDEMA

REACTIONS (1)
  - Drug ineffective [Recovered/Resolved]
